FAERS Safety Report 15183457 (Version 1)
Quarter: 2018Q3

REPORT INFORMATION
  Report Type: Spontaneous
  Country: GB (occurrence: GB)
  Receive Date: 20180723
  Receipt Date: 20180723
  Transmission Date: 20181010
  Serious: Yes (Other)
  Sender: FDA-Public Use
  Company Number: GB-MYLANLABS-2018M1053613

PATIENT
  Age: 17 Year
  Sex: Male
  Weight: 55 kg

DRUGS (2)
  1. ISOTRETINOIN. [Suspect]
     Active Substance: ISOTRETINOIN
     Indication: ACNE
     Dosage: 50 MG, UNK (DOSE REDUCED TO 30 MG)
     Route: 048
  2. GERMOLOIDS                         /01839401/ [Concomitant]
     Indication: HAEMORRHOIDS
     Dosage: UNK
     Route: 061

REACTIONS (4)
  - Anal haemorrhage [Not Recovered/Not Resolved]
  - Urethritis noninfective [Unknown]
  - Urethral haemorrhage [Unknown]
  - Anal inflammation [Unknown]

NARRATIVE: CASE EVENT DATE: 20180101
